FAERS Safety Report 23610166 (Version 1)
Quarter: 2024Q1

REPORT INFORMATION
  Report Type: Spontaneous
  Country: CZ (occurrence: CZ)
  Receive Date: 20240308
  Receipt Date: 20240308
  Transmission Date: 20240410
  Serious: Yes (Other)
  Sender: FDA-Public Use
  Company Number: CZ-SUN PHARMACEUTICAL INDUSTRIES LTD-2024R1-434946

PATIENT
  Sex: Female

DRUGS (3)
  1. DEXAMETHASONE [Suspect]
     Active Substance: DEXAMETHASONE
     Indication: Pleural effusion
     Dosage: UNK (6 X)
     Route: 065
     Dates: start: 201911, end: 202004
  2. CYCLOPHOSPHAMIDE [Suspect]
     Active Substance: CYCLOPHOSPHAMIDE
     Indication: Pleural effusion
     Dosage: UNK  (6 X)
     Route: 065
     Dates: start: 201911, end: 202004
  3. RITUXIMAB [Suspect]
     Active Substance: RITUXIMAB
     Indication: Pleural effusion
     Dosage: UNK  (6 X)
     Route: 065
     Dates: start: 201911, end: 202004

REACTIONS (1)
  - Disease progression [Unknown]
